FAERS Safety Report 9372415 (Version 1)
Quarter: 2013Q2

REPORT INFORMATION
  Report Type: Report from Study
  Country: US (occurrence: US)
  Receive Date: 20130627
  Receipt Date: 20130627
  Transmission Date: 20140414
  Serious: Yes (Other)
  Sender: FDA-Public Use
  Company Number: US-MYLANLABS-2012S1023146

PATIENT
  Age: 22 Year
  Sex: Male
  Weight: 72.58 kg

DRUGS (4)
  1. CLOZAPINE TABLETS [Suspect]
     Indication: SCHIZOPHRENIA
     Dates: start: 2012, end: 20130412
  2. NAVANE [Concomitant]
     Indication: SCHIZOPHRENIA
     Dates: start: 201209
  3. DEPAKOTE [Concomitant]
     Dates: start: 2011, end: 201301
  4. ATIVAN [Concomitant]
     Dates: start: 201209

REACTIONS (1)
  - Granulocytopenia [Not Recovered/Not Resolved]
